FAERS Safety Report 7629138-2 (Version None)
Quarter: 2011Q3

REPORT INFORMATION
  Report Type: 
  Country: None (occurrence: None)
  Receive Date: 20110722
  Receipt Date: 20110509
  Transmission Date: 20111222
  Serious: No
  Sender: FDA-Public Use
  Company Number: US-MUTUAL PHARMACEUTICAL COMPANY, INC.-DXCY20110007

PATIENT
  Age: 24 Year
  Sex: Female

DRUGS (3)
  1. DOXYCYCLINE [Suspect]
     Indication: ACNE
     Route: 065
     Dates: start: 20110303
  2. ADAPALENE [Suspect]
     Indication: ACNE
     Route: 061
     Dates: start: 20110303, end: 20110303
  3. DIFFERIN [Suspect]
     Indication: ACNE
     Route: 061
     Dates: start: 20110316, end: 20110316

REACTIONS (3)
  - PRURITUS [None]
  - ERYTHEMA [None]
  - SKIN DISCOLOURATION [None]
